FAERS Safety Report 12180045 (Version 1)
Quarter: 2016Q1

REPORT INFORMATION
  Report Type: Spontaneous
  Country: ES (occurrence: ES)
  Receive Date: 20160315
  Receipt Date: 20160315
  Transmission Date: 20160526
  Serious: Yes (Other)
  Sender: FDA-Public Use
  Company Number: ES-MYLANLABS-2016M1010888

PATIENT

DRUGS (2)
  1. ZOLEDRONIC ACID [Suspect]
     Active Substance: ZOLEDRONIC ACID
     Indication: BREAST CANCER METASTATIC
     Dosage: 4 MG, OVER 15-MINUTE EVERY 3-4 WEEKS FOR 24 CYCLES
     Route: 041
  2. MITOXANTRONE [Suspect]
     Active Substance: MITOXANTRONE HYDROCHLORIDE
     Indication: BREAST CANCER METASTATIC
     Dosage: 10 MG/M2, QD
     Route: 065

REACTIONS (4)
  - Diarrhoea [Unknown]
  - Osteonecrosis of jaw [Recovering/Resolving]
  - Stomatitis [Unknown]
  - Gingivitis [Recovering/Resolving]
